FAERS Safety Report 7568588-X (Version None)
Quarter: 2011Q2

REPORT INFORMATION
  Report Type: 
  Country: None (occurrence: None)
  Receive Date: 20110623
  Receipt Date: 20110614
  Transmission Date: 20111010
  Serious: Yes (Hospitalization)
  Sender: FDA-Public Use
  Company Number: US-BAXTER-2011BH016887

PATIENT
  Age: 59 Year
  Sex: Female
  Weight: 76 kg

DRUGS (15)
  1. SIMVASTATIN [Concomitant]
     Indication: BLOOD CHOLESTEROL INCREASED
     Route: 048
  2. NORVASC [Concomitant]
     Indication: HYPERTENSION
     Route: 048
  3. CARVEDILOL [Concomitant]
     Indication: CARDIAC FAILURE CONGESTIVE
     Route: 048
  4. SENSIPAR [Concomitant]
     Indication: BLOOD PARATHYROID HORMONE INCREASED
     Route: 048
  5. VALTREX [Concomitant]
     Indication: GENITAL HERPES
     Route: 048
  6. DIANEAL [Suspect]
     Indication: RENAL FAILURE CHRONIC
     Route: 033
     Dates: start: 20100518
  7. LASIX [Concomitant]
     Indication: DIURETIC THERAPY
     Route: 048
  8. PHOSLO [Concomitant]
     Indication: BLOOD PHOSPHORUS INCREASED
     Route: 048
  9. METHOCARBAMOL [Concomitant]
     Indication: BACK PAIN
     Route: 048
  10. HYDROCORTISONE [Suspect]
     Indication: ADRENAL INSUFFICIENCY
     Route: 048
     Dates: start: 20101001
  11. EPOGEN [Concomitant]
     Indication: ANAEMIA
     Route: 058
  12. OMEPRAZOLE [Concomitant]
     Indication: GASTROOESOPHAGEAL REFLUX DISEASE
     Route: 048
  13. DIANEAL [Suspect]
     Indication: RENAL FAILURE CHRONIC
     Route: 033
     Dates: start: 20100518
  14. PREDNISONE [Suspect]
     Indication: TRANSPLANT FAILURE
     Route: 048
  15. RANITIDINE [Concomitant]
     Indication: GASTROOESOPHAGEAL REFLUX DISEASE
     Route: 048

REACTIONS (3)
  - FLUID OVERLOAD [None]
  - SWELLING FACE [None]
  - EYE SWELLING [None]
